FAERS Safety Report 5551449-5 (Version None)
Quarter: 2007Q4

REPORT INFORMATION
  Report Type: 
  Country: None (occurrence: None)
  Receive Date: 20071129
  Receipt Date: 20070725
  Transmission Date: 20080405
  Serious: Yes (Other)
  Sender: FDA-Public Use
  Company Number: PHEH2007US08820

PATIENT
  Sex: Female

DRUGS (1)
  1. LAMISIL [Suspect]

REACTIONS (8)
  - CONTUSION [None]
  - FATIGUE [None]
  - HEPATITIS [None]
  - LIVER FUNCTION TEST ABNORMAL [None]
  - OCULAR ICTERUS [None]
  - SKIN DISCOLOURATION [None]
  - URINE COLOUR ABNORMAL [None]
  - YELLOW SKIN [None]
